FAERS Safety Report 16858562 (Version 1)
Quarter: 2019Q3

REPORT INFORMATION
  Report Type: Report from Study
  Country: US (occurrence: US)
  Receive Date: 20190926
  Receipt Date: 20190926
  Transmission Date: 20191005
  Serious: Yes (Hospitalization)
  Sender: FDA-Public Use
  Company Number: US-EISAI MEDICAL RESEARCH-EC-2019-055085

PATIENT
  Age: 69 Year
  Sex: Male

DRUGS (3)
  1. LACTULOSE. [Suspect]
     Active Substance: LACTULOSE
     Indication: AMMONIA INCREASED
     Dosage: DOSE AND FREQUENCY UNKNOWN
     Route: 065
  2. LENVIMA [Suspect]
     Active Substance: LENVATINIB
     Route: 048
     Dates: start: 20190418, end: 201908
  3. LENVIMA [Suspect]
     Active Substance: LENVATINIB
     Indication: HEPATOCELLULAR CARCINOMA
     Route: 048
     Dates: start: 20190326, end: 20190417

REACTIONS (8)
  - Diarrhoea [Not Recovered/Not Resolved]
  - Asthenia [Not Recovered/Not Resolved]
  - Nausea [Recovering/Resolving]
  - Disorientation [Not Recovered/Not Resolved]
  - Retching [Not Recovered/Not Resolved]
  - Hepatic vein thrombosis [Recovered/Resolved]
  - Confusional state [Not Recovered/Not Resolved]
  - Blood viscosity decreased [Not Recovered/Not Resolved]

NARRATIVE: CASE EVENT DATE: 2019
